FAERS Safety Report 4691307-1 (Version None)
Quarter: 2005Q2

REPORT INFORMATION
  Report Type: 
  Country: None (occurrence: None)
  Receive Date: 20050614
  Receipt Date: 20050531
  Transmission Date: 20051028
  Serious: Yes (Other)
  Sender: FDA-Public Use
  Company Number: 2005081828

PATIENT
  Sex: Male
  Weight: 108.8633 kg

DRUGS (2)
  1. CELEBREX [Suspect]
     Indication: OSTEOARTHRITIS
     Dosage: 600 MG (400 MG AM, 200 MG PM), ORAL
     Route: 048
  2. ALL OTHER THERAPEUTIC PRODUCTS (ALL OTHR THERAPEUTIC PRODUCTS) [Concomitant]

REACTIONS (2)
  - BACK PAIN [None]
  - INTERVERTEBRAL DISC DISORDER [None]
